FAERS Safety Report 5667749-4 (Version None)
Quarter: 2008Q1

REPORT INFORMATION
  Report Type: 
  Country: None (occurrence: None)
  Receive Date: 20080315
  Receipt Date: 20080201
  Transmission Date: 20080703
  Serious: No
  Sender: FDA-Public Use
  Company Number: US-ABBOTT-08P-163-0436341-00

PATIENT
  Sex: Male
  Weight: 79.45 kg

DRUGS (10)
  1. HUMIRA [Suspect]
     Indication: RHEUMATOID ARTHRITIS
     Route: 058
     Dates: start: 20050801, end: 20071224
  2. HUMIRA [Suspect]
     Route: 058
     Dates: start: 20040924, end: 20050601
  3. HUMIRA [Suspect]
     Route: 058
     Dates: start: 20050702, end: 20050817
  4. HUMIRA [Suspect]
     Route: 058
     Dates: start: 20080107
  5. METHOTREXATE [Concomitant]
     Indication: RHEUMATOID ARTHRITIS
     Route: 048
     Dates: start: 19980101, end: 20080102
  6. METHYLPREDNISOLONE ACETATE [Concomitant]
     Indication: RHEUMATOID ARTHRITIS
     Route: 030
     Dates: start: 20080108, end: 20080108
  7. VICODIN [Concomitant]
     Indication: PAIN MANAGEMENT
     Route: 048
     Dates: start: 20080121
  8. IBUPROFEN [Concomitant]
     Indication: PAIN MANAGEMENT
     Route: 048
     Dates: start: 20080123
  9. FOLIC ACID [Concomitant]
     Indication: VITAMIN SUPPLEMENTATION
     Route: 048
     Dates: end: 20080102
  10. VITAMINS [Concomitant]
     Indication: VITAMIN SUPPLEMENTATION
     Route: 048

REACTIONS (3)
  - DRUG INEFFECTIVE [None]
  - PARANASAL SINUS HYPERSECRETION [None]
  - PRODUCTIVE COUGH [None]
